FAERS Safety Report 25594901 (Version 2)
Quarter: 2025Q3

REPORT INFORMATION
  Report Type: Spontaneous
  Country: US (occurrence: US)
  Receive Date: 20250723
  Receipt Date: 20250901
  Transmission Date: 20251021
  Serious: No
  Sender: BIOGEN
  Company Number: US-BIOGEN-2025BI01317841

PATIENT
  Sex: Female

DRUGS (3)
  1. ZURZUVAE [Suspect]
     Active Substance: ZURANOLONE
     Indication: Perinatal depression
     Route: 050
  2. ZURZUVAE [Suspect]
     Active Substance: ZURANOLONE
     Route: 050
  3. ZURZUVAE [Suspect]
     Active Substance: ZURANOLONE
     Route: 050
     Dates: start: 20250701, end: 20250717

REACTIONS (1)
  - Somnolence [Unknown]
